FAERS Safety Report 11647210 (Version 2)
Quarter: 2015Q4

REPORT INFORMATION
  Report Type: Spontaneous
  Country: DE (occurrence: DE)
  Receive Date: 20151021
  Receipt Date: 20151106
  Transmission Date: 20160304
  Serious: Yes (Other)
  Sender: FDA-Public Use
  Company Number: DE-AUROBINDO-AUR-APL-2015-09335

PATIENT
  Age: 43 Year
  Sex: Female

DRUGS (2)
  1. DOXEPIN [Suspect]
     Active Substance: DOXEPIN
     Indication: DEPRESSION
     Route: 065
  2. ZOLPIDEM [Suspect]
     Active Substance: ZOLPIDEM\ZOLPIDEM TARTRATE
     Indication: SLEEP DISORDER
     Dosage: 10 MG, UNK
     Route: 065

REACTIONS (7)
  - Gait disturbance [Unknown]
  - Anterograde amnesia [Unknown]
  - Overdose [Unknown]
  - Confusional state [Unknown]
  - Poisoning [Unknown]
  - Somnambulism [Unknown]
  - Dysarthria [Unknown]
